FAERS Safety Report 7958873-1 (Version None)
Quarter: 2011Q4

REPORT INFORMATION
  Report Type: 
  Country: None (occurrence: None)
  Receive Date: 20111201
  Receipt Date: 20111117
  Transmission Date: 20120403
  Serious: Yes (Other)
  Sender: FDA-Public Use
  Company Number: CA-005769

PATIENT
  Sex: Male
  Weight: 83 kg

DRUGS (1)
  1. FIRMAGON [Suspect]
     Indication: PROSTATE CANCER
     Dosage: (80 MG 1X/MONTH SUBCUTANEOUS)
     Route: 058
     Dates: start: 20110526

REACTIONS (7)
  - INJECTION SITE PAIN [None]
  - INJECTION SITE ERYTHEMA [None]
  - HYPOAESTHESIA [None]
  - METASTASES TO BONE [None]
  - INJECTION SITE NODULE [None]
  - FATIGUE [None]
  - PARAESTHESIA [None]
